FAERS Safety Report 14027313 (Version 2)
Quarter: 2018Q3

REPORT INFORMATION
  Report Type: Spontaneous
  Country: US (occurrence: US)
  Receive Date: 20170929
  Receipt Date: 20180927
  Transmission Date: 20181010
  Serious: No
  Sender: FDA-Public Use
  Company Number: US-NOVEN PHARMACEUTICALS, INC.-US2017000957

PATIENT

DRUGS (6)
  1. COMBIPATCH [Suspect]
     Active Substance: ESTRADIOL\NORETHINDRONE ACETATE
     Indication: NIGHT SWEATS
     Dosage: APPLYING 50/140 MG PATCHES BY CUTTING THEM,2/WK
     Route: 062
  2. COMBIPATCH [Suspect]
     Active Substance: ESTRADIOL\NORETHINDRONE ACETATE
     Dosage: APPLIED QUARTER PATCH, 2/WK
     Route: 062
  3. LORAZEPAM. [Concomitant]
     Active Substance: LORAZEPAM
     Indication: MOTION SICKNESS
     Dosage: 0.5 MG, UNK
     Dates: start: 2016
  4. COMBIPATCH [Suspect]
     Active Substance: ESTRADIOL\NORETHINDRONE ACETATE
     Dosage: APPLYING 50/250 MG PATCHES BY CUTTING THEM, 2/WK
     Route: 062
  5. COMBIPATCH [Suspect]
     Active Substance: ESTRADIOL\NORETHINDRONE ACETATE
     Dosage: 50/140 MG, 2/WK
     Route: 062
  6. COMBIPATCH [Suspect]
     Active Substance: ESTRADIOL\NORETHINDRONE ACETATE
     Indication: HOT FLUSH
     Dosage: 50/140 MG, 2/WK
     Route: 062

REACTIONS (8)
  - Gastrooesophageal reflux disease [Recovered/Resolved]
  - Wrong technique in product usage process [Recovered/Resolved]
  - Vertigo [Recovered/Resolved]
  - Off label use [Unknown]
  - Muscle spasms [Recovered/Resolved]
  - Feeling abnormal [Recovered/Resolved]
  - Hot flush [Recovered/Resolved]
  - Motion sickness [Recovered/Resolved]
